FAERS Safety Report 10865815 (Version 1)
Quarter: 2015Q1

REPORT INFORMATION
  Report Type: Spontaneous
  Country: US (occurrence: US)
  Receive Date: 20150224
  Receipt Date: 20150224
  Transmission Date: 20150721
  Serious: No
  Sender: FDA-Public Use
  Company Number: US-BAUSCH-BL-2014-006818

PATIENT
  Sex: Male
  Weight: 81.72 kg

DRUGS (3)
  1. NEOMYCIN AND POLYMYXIN B SULFATES AND HYDROCORTISONE [Suspect]
     Active Substance: HYDROCORTISONE\NEOMYCIN SULFATE\POLYMYXIN B SULFATE
     Indication: EAR INFECTION
  2. CEFDINIR. [Interacting]
     Active Substance: CEFDINIR
     Indication: EAR INFECTION
  3. CEFDINIR. [Interacting]
     Active Substance: CEFDINIR
     Dates: start: 20140729

REACTIONS (8)
  - Weight decreased [Recovered/Resolved]
  - Dysphagia [Not Recovered/Not Resolved]
  - Abdominal discomfort [Recovered/Resolved]
  - Hypertension [Recovered/Resolved]
  - Sinusitis [Unknown]
  - Dry mouth [Unknown]
  - Gastritis [Recovered/Resolved]
  - Blood potassium decreased [Recovered/Resolved]
